FAERS Safety Report 11242424 (Version 9)
Quarter: 2017Q2

REPORT INFORMATION
  Report Type: Report from Study
  Country: CA (occurrence: CA)
  Receive Date: 20150707
  Receipt Date: 20170425
  Transmission Date: 20170829
  Serious: Yes (Death, Other)
  Sender: FDA-Public Use
  Company Number: CA-ROCHE-ITM201503IM011205

PATIENT
  Age: 67 Year
  Sex: Male
  Weight: 68.1 kg

DRUGS (6)
  1. ESBRIET [Suspect]
     Active Substance: PIRFENIDONE
     Route: 048
     Dates: start: 20150220
  2. ESBRIET [Suspect]
     Active Substance: PIRFENIDONE
     Indication: IDIOPATHIC PULMONARY FIBROSIS
     Route: 048
     Dates: start: 20150213, end: 201704
  3. TAMSULOSIN SANDOZ [Concomitant]
     Active Substance: TAMSULOSIN
     Route: 065
  4. TECTA [Concomitant]
     Active Substance: PANTOPRAZOLE MAGNESIUM
     Route: 065
  5. ESBRIET [Suspect]
     Active Substance: PIRFENIDONE
     Route: 048
     Dates: start: 20150227
  6. BISOPROLOL [Concomitant]
     Active Substance: BISOPROLOL
     Route: 065

REACTIONS (15)
  - Abdominal discomfort [Recovering/Resolving]
  - Skin disorder [Not Recovered/Not Resolved]
  - Lower respiratory tract infection [Recovered/Resolved]
  - Rash macular [Not Recovered/Not Resolved]
  - Fatigue [Recovering/Resolving]
  - Pulmonary function test abnormal [Not Recovered/Not Resolved]
  - Dyspnoea [Fatal]
  - Pruritus [Not Recovered/Not Resolved]
  - Skin exfoliation [Not Recovered/Not Resolved]
  - Weight decreased [Unknown]
  - Scab [Not Recovered/Not Resolved]
  - Pulmonary function test decreased [Unknown]
  - Pallor [Not Recovered/Not Resolved]
  - Decreased appetite [Unknown]
  - Decreased appetite [Not Recovered/Not Resolved]

NARRATIVE: CASE EVENT DATE: 20150421
